FAERS Safety Report 8251253-3 (Version None)
Quarter: 2012Q2

REPORT INFORMATION
  Report Type: 
  Country: None (occurrence: None)
  Receive Date: 20120402
  Receipt Date: 20120327
  Transmission Date: 20120825
  Serious: Yes (Other)
  Sender: FDA-Public Use
  Company Number: US-PFIZER INC-2012078707

PATIENT
  Sex: Female
  Weight: 94.331 kg

DRUGS (3)
  1. PRISTIQ [Suspect]
     Indication: DEPRESSED MOOD
     Dosage: 50 MG, 1X/DAY
     Route: 048
     Dates: start: 20120320
  2. TIMOPTIC [Concomitant]
     Indication: GLAUCOMA
     Dosage: UNK
  3. GLYBURIDE [Concomitant]
     Indication: DIABETES MELLITUS
     Dosage: 10 MG, 2X/DAY

REACTIONS (1)
  - DEPRESSED MOOD [None]
